FAERS Safety Report 6392455-0 (Version None)
Quarter: 2009Q4

REPORT INFORMATION
  Report Type: 
  Country: None (occurrence: None)
  Receive Date: 20091007
  Receipt Date: 20090928
  Transmission Date: 20100525
  Serious: Yes (Other)
  Sender: FDA-Public Use
  Company Number: US-PFIZER INC-2009258269

PATIENT
  Sex: Male
  Weight: 54.422 kg

DRUGS (3)
  1. CLEOCIN [Suspect]
     Indication: TONSILLITIS
     Dosage: 300 MG, 2X/DAY
     Route: 048
     Dates: start: 20090807, end: 20090816
  2. CLEOCIN [Suspect]
     Indication: BACTERIAL INFECTION
  3. CLEOCIN [Suspect]
     Indication: OROPHARYNGEAL PAIN

REACTIONS (4)
  - EYELID OEDEMA [None]
  - HYPERSENSITIVITY [None]
  - RASH [None]
  - RASH PAPULAR [None]
